FAERS Safety Report 18006342 (Version 1)
Quarter: 2020Q3

REPORT INFORMATION
  Report Type: Spontaneous
  Country: US (occurrence: US)
  Receive Date: 20200710
  Receipt Date: 20200710
  Transmission Date: 20201103
  Serious: Yes (Other)
  Sender: FDA-Public Use
  Company Number: None

PATIENT
  Age: 41 Year
  Sex: Female
  Weight: 49.5 kg

DRUGS (3)
  1. MULTIVITAMIN [Concomitant]
     Active Substance: VITAMINS
  2. BIOTIN [Concomitant]
     Active Substance: BIOTIN
  3. CLEARASIL RAPID RESCUE DEEP TREATMENT PADS [Suspect]
     Active Substance: SALICYLIC ACID
     Indication: ACNE
     Route: 061
     Dates: start: 20200502, end: 20200702

REACTIONS (5)
  - Skin discharge [None]
  - Second degree chemical burn of skin [None]
  - Skin exfoliation [None]
  - Skin fissures [None]
  - Skin haemorrhage [None]

NARRATIVE: CASE EVENT DATE: 20200702
